FAERS Safety Report 10144598 (Version 1)
Quarter: 2014Q2

REPORT INFORMATION
  Report Type: Spontaneous
  Country: US (occurrence: US)
  Receive Date: 20140430
  Receipt Date: 20140430
  Transmission Date: 20141212
  Serious: No
  Sender: FDA-Public Use
  Company Number: US-SANOFI-AVENTIS-2013SA044951

PATIENT
  Sex: Male
  Weight: 81.64 kg

DRUGS (1)
  1. LOVENOX [Suspect]
     Indication: THROMBOSIS
     Route: 065

REACTIONS (3)
  - Malaise [Unknown]
  - Overdose [Unknown]
  - Fatigue [Unknown]
